FAERS Safety Report 10968614 (Version 1)
Quarter: 2015Q1

REPORT INFORMATION
  Report Type: Spontaneous
  Country: US (occurrence: US)
  Receive Date: 20150330
  Receipt Date: 20150330
  Transmission Date: 20150721
  Serious: Yes (Other)
  Sender: FDA-Public Use
  Company Number: US-CELGENEUS-USA-2014122700

PATIENT
  Sex: Male

DRUGS (2)
  1. POMALYST [Suspect]
     Active Substance: POMALIDOMIDE
     Route: 048
     Dates: start: 201501
  2. POMALYST [Suspect]
     Active Substance: POMALIDOMIDE
     Indication: PLASMA CELL MYELOMA
     Route: 048
     Dates: start: 20141107

REACTIONS (5)
  - Micturition urgency [Not Recovered/Not Resolved]
  - Cough [Unknown]
  - Paranasal sinus hypersecretion [Unknown]
  - Back pain [Unknown]
  - Orgasm abnormal [Unknown]

NARRATIVE: CASE EVENT DATE: 2014
